FAERS Safety Report 22083533 (Version 1)
Quarter: 2023Q1

REPORT INFORMATION
  Report Type: Spontaneous
  Country: GB (occurrence: GB)
  Receive Date: 20230310
  Receipt Date: 20230310
  Transmission Date: 20230418
  Serious: Yes (Other)
  Sender: FDA-Public Use
  Company Number: GB-MHRA-TPP5125410C8582993YC1677573792210

PATIENT
  Age: 24 Year
  Sex: Female
  Weight: 156 kg

DRUGS (7)
  1. TRANEXAMIC ACID [Suspect]
     Active Substance: TRANEXAMIC ACID
     Indication: Ill-defined disorder
     Dosage: UNK
     Route: 065
     Dates: start: 20230131
  2. BECLOMETHASONE DIPROPIONATE [Concomitant]
     Active Substance: BECLOMETHASONE DIPROPIONATE
     Indication: Ill-defined disorder
     Dosage: INHALE 2 DOSES TWICE DAILY
     Dates: start: 20191014
  3. FLUOXETINE [Concomitant]
     Active Substance: FLUOXETINE HYDROCHLORIDE
     Indication: Ill-defined disorder
     Dosage: 60 MILLIGRAM, ONCE A DAY,3X5ML SPOON DAILY (60MG)
     Route: 065
     Dates: start: 20191014
  4. LANSOPRAZOLE [Concomitant]
     Active Substance: LANSOPRAZOLE
     Indication: Ill-defined disorder
     Dosage: 1 DOSAGE FORM, ONCE A DAY, TAKE ONE ONCE DAILY
     Route: 065
     Dates: start: 20191014
  5. LEVOTHYROXINE [Concomitant]
     Active Substance: LEVOTHYROXINE
     Indication: Ill-defined disorder
     Dosage: 4 DOSAGE FORM, ONCE A DAY, TAKE 4 TABLETS DAILY (TOTAL DOSE 100MCG OD)- PT...
     Route: 065
     Dates: start: 20210809
  6. TRANEXAMIC ACID [Concomitant]
     Active Substance: TRANEXAMIC ACID
     Indication: Ill-defined disorder
     Dosage: 2 DOSAGE FORM, 3 TIMES A DAY, TAKE 2 TABLETS TDS - MAX 5 DAYS
     Route: 065
     Dates: start: 20230119, end: 20230124
  7. VENTOLIN [Concomitant]
     Active Substance: ALBUTEROL SULFATE
     Indication: Ill-defined disorder
     Dosage: INHALE 2 DOSES AS NEEDED
     Dates: start: 20191014

REACTIONS (1)
  - Chest pain [Recovered/Resolved]

NARRATIVE: CASE EVENT DATE: 20230228
